FAERS Safety Report 6877807-4 (Version None)
Quarter: 2010Q3

REPORT INFORMATION
  Report Type: 
  Country: None (occurrence: None)
  Receive Date: 20100727
  Receipt Date: 20100408
  Transmission Date: 20110219
  Serious: No
  Sender: FDA-Public Use
  Company Number: US-ABBOTT-10P-163-0638574-00

PATIENT
  Sex: Female
  Weight: 79.45 kg

DRUGS (2)
  1. SYNTHROID [Suspect]
     Indication: HYPOTHYROIDISM
     Dosage: 75MCG DAILY
     Dates: start: 20090101
  2. SINGULAIR [Concomitant]
     Indication: ASTHMA

REACTIONS (3)
  - ALOPECIA [None]
  - DYSPNOEA [None]
  - FATIGUE [None]
